FAERS Safety Report 13156235 (Version 2)
Quarter: 2017Q1

REPORT INFORMATION
  Report Type: Report from Study
  Country: BE (occurrence: BE)
  Receive Date: 20170126
  Receipt Date: 20170130
  Transmission Date: 20170428
  Serious: Yes (Hospitalization)
  Sender: FDA-Public Use
  Company Number: BE-CELGENEUS-BEL-2017016898

PATIENT
  Age: 69 Year
  Sex: Female

DRUGS (1)
  1. ABRAXANE [Suspect]
     Active Substance: PACLITAXEL
     Indication: PANCREATIC CARCINOMA METASTATIC
     Dosage: 125 MILLIGRAM/SQ. METER
     Route: 041
     Dates: start: 20161027

REACTIONS (4)
  - Tachypnoea [Recovered/Resolved]
  - Pyrexia [Recovered/Resolved]
  - Haemoptysis [Recovered/Resolved]
  - Lung infection [Not Recovered/Not Resolved]

NARRATIVE: CASE EVENT DATE: 20170115
